FAERS Safety Report 4740211-9 (Version None)
Quarter: 2005Q3

REPORT INFORMATION
  Report Type: 
  Country: None (occurrence: None)
  Receive Date: 20050805
  Receipt Date: 20050802
  Transmission Date: 20060218
  Serious: Yes (Hospitalization)
  Sender: FDA-Public Use
  Company Number: 05-08-1342

PATIENT
  Age: 80 Year
  Sex: Female

DRUGS (10)
  1. DOXAZOSIN [Suspect]
     Dosage: 4MG OD ORAL
     Route: 048
     Dates: end: 20050704
  2. FUROSEMIDE [Suspect]
     Dosage: 80MG OD
     Dates: end: 20050704
  3. GLICIAZIDE [Suspect]
     Dosage: 80 MG OD
     Dates: end: 20050704
  4. ETODOLAC [Suspect]
     Dosage: 300MG BD ORAL
     Route: 048
     Dates: end: 20050704
  5. AMITRIPTYLINE HCL [Suspect]
     Dosage: 10MG ON ORAL
     Route: 048
     Dates: end: 20050704
  6. ASPIRIN [Concomitant]
  7. FERROUS SULFATE TAB [Concomitant]
  8. MIXTARD HUMAN [Concomitant]
  9. BETNOVATE [Concomitant]
  10. EUMOVATE [Concomitant]

REACTIONS (1)
  - DERMATITIS EXFOLIATIVE [None]
